FAERS Safety Report 15227731 (Version 1)
Quarter: 2018Q3

REPORT INFORMATION
  Report Type: Spontaneous
  Country: JP (occurrence: JP)
  Receive Date: 20180801
  Receipt Date: 20180801
  Transmission Date: 20181010
  Serious: Yes (Other)
  Sender: FDA-Public Use
  Company Number: JP-SA-2018SA198000

PATIENT
  Age: 78 Year
  Sex: Female

DRUGS (5)
  1. ELPLAT [Suspect]
     Active Substance: OXALIPLATIN
     Indication: RECTAL CANCER
     Dosage: INJECTION
     Route: 041
  2. VECTIBIX [Concomitant]
     Active Substance: PANITUMUMAB
  3. RINDERON [BETAMETHASONE] [Concomitant]
     Route: 048
  4. LEVOFOLINATE CALCIUM [Suspect]
     Active Substance: LEVOLEUCOVORIN CALCIUM
     Indication: RECTAL CANCER
     Dosage: INJECTION
     Route: 041
  5. 5?FU [FLUOROURACIL] [Concomitant]
     Active Substance: FLUOROURACIL

REACTIONS (1)
  - Stevens-Johnson syndrome [Recovering/Resolving]
